FAERS Safety Report 21689641 (Version 1)
Quarter: 2022Q4

REPORT INFORMATION
  Report Type: Spontaneous
  Country: US (occurrence: None)
  Receive Date: 20221206
  Receipt Date: 20221206
  Transmission Date: 20230112
  Serious: Yes (Other)
  Sender: FDA-Public Use
  Company Number: None

PATIENT
  Age: 70 Year
  Sex: Female
  Weight: 55.8 kg

DRUGS (15)
  1. NITROFURANTOIN MONOHYDRATE MACROCRYSTALS [Suspect]
     Active Substance: NITROFURANTOIN\NITROFURANTOIN MONOHYDRATE
     Indication: Urinary tract infection
     Dosage: OTHER QUANTITY : 1 CAPSULE(S);?FREQUENCY : TWICE A DAY;?
     Route: 048
     Dates: start: 20221121, end: 20221128
  2. LEVOTHYROXIN [Concomitant]
  3. ROSUVASTATIN [Concomitant]
  4. PILOCARPINE [Concomitant]
     Active Substance: PILOCARPINE
  5. PANTOPRAZOLE [Concomitant]
     Active Substance: PANTOPRAZOLE
  6. LINZESS [Concomitant]
     Active Substance: LINACLOTIDE
  7. PROAIR HFA [Concomitant]
  8. CLINDAMYCIN [Concomitant]
  9. LORAZEPAM [Concomitant]
     Active Substance: LORAZEPAM
  10. TYLENOL EXTRA STRENGTH [Concomitant]
     Active Substance: ACETAMINOPHEN
  11. COENZYME Q10 [Concomitant]
     Active Substance: DIETARY SUPPLEMENT\UBIDECARENONE
  12. MELATONIN [Concomitant]
  13. Magnesium Boost [Concomitant]
  14. Blue Heron [Concomitant]
  15. Liposomal [Concomitant]

REACTIONS (8)
  - Pruritus [None]
  - Sleep disorder [None]
  - Pyrexia [None]
  - Enlarged uvula [None]
  - Urticaria [None]
  - Pruritus [None]
  - Paraesthesia [None]
  - Sensitive skin [None]

NARRATIVE: CASE EVENT DATE: 20221128
